FAERS Safety Report 24017257 (Version 1)
Quarter: 2024Q2

REPORT INFORMATION
  Report Type: Spontaneous
  Country: US (occurrence: US)
  Receive Date: 20240627
  Receipt Date: 20240627
  Transmission Date: 20240715
  Serious: Yes (Life-Threatening, Hospitalization)
  Sender: FDA-Public Use
  Company Number: US-STRIDES ARCOLAB LIMITED-2024SP007534

PATIENT
  Age: 65 Year
  Sex: Female

DRUGS (3)
  1. AMLODIPINE [Suspect]
     Active Substance: AMLODIPINE BESYLATE
     Indication: Product used for unknown indication
     Dosage: 10 MILLIGRAM (TABLET), INGESTED AT LEAST FIFTEEN TABLET
     Route: 065
  2. LISINOPRIL [Suspect]
     Active Substance: LISINOPRIL
     Indication: Product used for unknown indication
     Dosage: UNK (UNSPECIFIED AMOUNT) (TABLET)
     Route: 065
  3. VALPROATE SODIUM [Suspect]
     Active Substance: VALPROATE SODIUM
     Indication: Product used for unknown indication
     Dosage: UNK (UNSPECIFIED AMOUNT)
     Route: 065

REACTIONS (9)
  - Vasoplegia syndrome [Unknown]
  - Lactic acidosis [Unknown]
  - Suicide attempt [Unknown]
  - Blood creatinine increased [Unknown]
  - Leukocytosis [Unknown]
  - Hyperglycaemia [Unknown]
  - Hypotension [Unknown]
  - Somnolence [Unknown]
  - Intentional overdose [Unknown]
